FAERS Safety Report 6938292-7 (Version None)
Quarter: 2010Q3

REPORT INFORMATION
  Report Type: 
  Country: None (occurrence: None)
  Receive Date: 20100824
  Receipt Date: 20100813
  Transmission Date: 20110219
  Serious: Yes (Other)
  Sender: FDA-Public Use
  Company Number: JP-PFIZER INC-2010101805

PATIENT
  Age: 80 Year
  Sex: Female

DRUGS (1)
  1. ZOLOFT [Suspect]
     Dosage: 50 MG, 1X/DAY
     Route: 048

REACTIONS (2)
  - BLOOD CREATINE PHOSPHOKINASE INCREASED [None]
  - INAPPROPRIATE ANTIDIURETIC HORMONE SECRETION [None]
